FAERS Safety Report 22588622 (Version 1)
Quarter: 2023Q2

REPORT INFORMATION
  Report Type: Spontaneous
  Country: PE (occurrence: PE)
  Receive Date: 20230612
  Receipt Date: 20230612
  Transmission Date: 20230721
  Serious: Yes (Life-Threatening, Hospitalization, Other)
  Sender: FDA-Public Use
  Company Number: PE-CHEPLA-2023006996

PATIENT
  Sex: Female

DRUGS (1)
  1. CLONAZEPAM [Suspect]
     Active Substance: CLONAZEPAM
     Dosage: PILL
     Route: 048

REACTIONS (3)
  - Syncope [Unknown]
  - Intentional product misuse to child [Unknown]
  - Prescription drug used without a prescription [Unknown]
